FAERS Safety Report 8080722-4 (Version None)
Quarter: 2012Q1

REPORT INFORMATION
  Report Type: 
  Country: None (occurrence: None)
  Receive Date: 20120130
  Receipt Date: 20120124
  Transmission Date: 20120608
  Serious: Yes (Death)
  Sender: FDA-Public Use
  Company Number: PHHY2011CR76362

PATIENT
  Age: 71 Year
  Sex: Male

DRUGS (1)
  1. EXFORGE [Suspect]
     Indication: HYPERTENSION
     Dosage: 160 MG VALS AND 5 MG AMLO

REACTIONS (3)
  - METASTASES TO LUNG [None]
  - COLON CANCER [None]
  - METASTASES TO LIVER [None]
